FAERS Safety Report 17968025 (Version 1)
Quarter: 2020Q3

REPORT INFORMATION
  Report Type: Spontaneous
  Country: SE (occurrence: SE)
  Receive Date: 20200701
  Receipt Date: 20200701
  Transmission Date: 20201103
  Serious: Yes (Other)
  Sender: FDA-Public Use
  Company Number: NVSC2020SE181472

PATIENT
  Age: 24 Year
  Sex: Female
  Weight: 83 kg

DRUGS (1)
  1. METHYLPHENIDATE. [Suspect]
     Active Substance: METHYLPHENIDATE
     Indication: ATTENTION DEFICIT HYPERACTIVITY DISORDER
     Dosage: 20 MG, QD (1 TABLETT P? MORGONEN OCH EN TILL LUNCH VID BEHOV.10 MG)
     Route: 065
     Dates: start: 20200508

REACTIONS (3)
  - Migraine [Recovering/Resolving]
  - Hyperventilation [Recovering/Resolving]
  - Panic attack [Recovering/Resolving]

NARRATIVE: CASE EVENT DATE: 20200509
